FAERS Safety Report 12224132 (Version 2)
Quarter: 2016Q2

REPORT INFORMATION
  Report Type: Report from Study
  Country: GB (occurrence: GB)
  Receive Date: 20160330
  Receipt Date: 20160502
  Transmission Date: 20160815
  Serious: Yes (Hospitalization, Other)
  Sender: FDA-Public Use
  Company Number: GB-AMGEN-GBRSL2016037995

PATIENT
  Age: 53 Year
  Sex: Male

DRUGS (1)
  1. ARANESP [Suspect]
     Active Substance: DARBEPOETIN ALFA
     Indication: PRODUCT USED FOR UNKNOWN INDICATION
     Dosage: 20 MUG, UNK
     Route: 065

REACTIONS (7)
  - Malaise [Unknown]
  - Urinary retention [Unknown]
  - Infection [Unknown]
  - Pyrexia [Unknown]
  - Urosepsis [Unknown]
  - Peritoneal dialysis [Unknown]
  - Haemoglobin abnormal [Unknown]
